FAERS Safety Report 15378553 (Version 1)
Quarter: 2018Q3

REPORT INFORMATION
  Report Type: Spontaneous
  Country: MK (occurrence: MK)
  Receive Date: 20180913
  Receipt Date: 20180913
  Transmission Date: 20181010
  Serious: Yes (Other)
  Sender: FDA-Public Use
  Company Number: MK-BRISTOL-MYERS SQUIBB COMPANY-BMS-2018-083679

PATIENT
  Age: 52 Year
  Sex: Male

DRUGS (1)
  1. HYDROXYUREA. [Suspect]
     Active Substance: HYDROXYUREA
     Indication: THROMBOCYTOSIS
     Dosage: 1.5 G,PER DAY
     Route: 065

REACTIONS (5)
  - Infected skin ulcer [Unknown]
  - Basal cell carcinoma [Unknown]
  - Staphylococcal infection [Unknown]
  - Enterococcal infection [Unknown]
  - Actinic keratosis [Unknown]
